FAERS Safety Report 22031314 (Version 1)
Quarter: 2023Q1

REPORT INFORMATION
  Report Type: Spontaneous
  Country: US (occurrence: US)
  Receive Date: 20230223
  Receipt Date: 20230223
  Transmission Date: 20230418
  Serious: Yes (Other)
  Sender: FDA-Public Use
  Company Number: US-AUROBINDO-AUR-APL-2022-057872

PATIENT
  Age: 3 Month
  Sex: Female

DRUGS (9)
  1. METHOTREXATE [Suspect]
     Active Substance: METHOTREXATE
     Indication: Neoplasm
     Dosage: 1 MILLIGRAM/KILOGRAM, EVERY WEEK
     Route: 065
  2. VINBLASTINE [Suspect]
     Active Substance: VINBLASTINE
     Indication: Neoplasm
     Dosage: 0.17 MILLIGRAM/KILOGRAM
     Route: 065
  3. IMATINIB [Concomitant]
     Active Substance: IMATINIB
     Indication: Evidence based treatment
     Dosage: 11.3 MILLIGRAM/KILOGRAM, ONCE A DAY
     Route: 065
  4. IMATINIB [Concomitant]
     Active Substance: IMATINIB
     Dosage: 20 MILLIGRAM/KILOGRAM, ONCE A DAY
     Route: 065
  5. IMATINIB [Concomitant]
     Active Substance: IMATINIB
     Dosage: 9.9 MILLIGRAM/KILOGRAM, ONCE A DAY
     Route: 065
  6. FAMOTIDINE [Concomitant]
     Active Substance: FAMOTIDINE
     Indication: Antacid therapy
     Dosage: UNK
     Route: 042
  7. PANTOPRAZOLE [Concomitant]
     Active Substance: PANTOPRAZOLE
     Indication: Antacid therapy
     Dosage: UNK
     Route: 065
  8. ESOMEPRAZOLE [Concomitant]
     Active Substance: ESOMEPRAZOLE
     Indication: Product used for unknown indication
     Dosage: UNK
     Route: 065
  9. OCTREOTIDE [Concomitant]
     Active Substance: OCTREOTIDE
     Indication: Product used for unknown indication
     Dosage: UNK
     Route: 042

REACTIONS (1)
  - Drug ineffective [Unknown]
